FAERS Safety Report 8607885 (Version 3)
Quarter: 2013Q4

REPORT INFORMATION
  Report Type: Spontaneous
  Country: US (occurrence: US)
  Receive Date: 20120611
  Receipt Date: 20131202
  Transmission Date: 20140711
  Serious: Yes (Hospitalization, Disabling)
  Sender: FDA-Public Use
  Company Number: US-ASTRAZENECA-2012SE35171

PATIENT
  Age: 32 Year
  Sex: Female
  Weight: 102.1 kg

DRUGS (16)
  1. NEXIUM [Suspect]
     Indication: GASTROOESOPHAGEAL REFLUX DISEASE
     Route: 048
     Dates: start: 200402, end: 2011
  2. NEXIUM [Suspect]
     Indication: GASTRIC DISORDER
     Route: 048
     Dates: start: 200402, end: 2011
  3. OMEPRAZOLE [Suspect]
     Indication: GASTROOESOPHAGEAL REFLUX DISEASE
     Route: 048
     Dates: start: 2011
  4. CARAFATE [Concomitant]
     Dosage: 2 TIMES A DAY
     Dates: start: 2011
  5. ZANTAC [Concomitant]
     Indication: GASTROOESOPHAGEAL REFLUX DISEASE
     Dates: start: 2011, end: 2012
  6. TUMS [Concomitant]
  7. PEPTO BISMOL [Concomitant]
  8. ROLAIDS [Concomitant]
     Indication: GASTROOESOPHAGEAL REFLUX DISEASE
     Dates: start: 2005
  9. ROLAIDS [Concomitant]
     Indication: GASTRIC DISORDER
     Dates: start: 2005
  10. AMBIEN [Concomitant]
     Indication: SLEEP DISORDER
  11. HYDROCODINE [Concomitant]
     Indication: PAIN
     Dosage: 10-600 MG TWO TIMES A DAY
  12. PROMETHAZINE [Concomitant]
     Indication: NAUSEA
  13. BENAZEPRIL [Concomitant]
     Indication: BLOOD PRESSURE ABNORMAL
  14. CLONIDINE [Concomitant]
     Indication: BLOOD PRESSURE
     Dosage: 0.1 7 DAYS
  15. ASPIRIN [Concomitant]
  16. MILK OF MAGNESIA [Concomitant]

REACTIONS (15)
  - Chest pain [Unknown]
  - Cardiac disorder [Unknown]
  - Intervertebral disc disorder [Unknown]
  - Bone disorder [Unknown]
  - Fibromyalgia [Unknown]
  - Intervertebral disc degeneration [Unknown]
  - Osteoporosis [Unknown]
  - Fatigue [Unknown]
  - Lower limb fracture [Unknown]
  - Hand fracture [Unknown]
  - Hypoaesthesia [Unknown]
  - Spondylolisthesis [Unknown]
  - Spinal osteoarthritis [Unknown]
  - Vertebral foraminal stenosis [Unknown]
  - Muscular weakness [Unknown]
